FAERS Safety Report 7293785-0 (Version None)
Quarter: 2011Q1

REPORT INFORMATION
  Report Type: 
  Country: None (occurrence: None)
  Receive Date: 20110204
  Receipt Date: 20110120
  Transmission Date: 20110831
  Serious: Yes (Death)
  Sender: FDA-Public Use
  Company Number: APP201100061

PATIENT
  Age: 34 Year
  Sex: Female

DRUGS (8)
  1. AMPHETAMINE [Suspect]
     Indication: PRODUCT USED FOR UNKNOWN INDICATION
  2. ACETAMINOPHNE/DIPHENHYDRAMINE [Suspect]
     Indication: PRODUCT USED FOR UNKNOWN INDICATION
  3. LORAZEPAM [Suspect]
     Indication: PRODUCT USED FOR UNKNOWN INDICATION
  4. FLUOXETINE [Suspect]
     Indication: PRODUCT USED FOR UNKNOWN INDICATION
  5. BENZADIAZEPINE [Suspect]
     Indication: PRODUCT USED FOR UNKNOWN INDICATION
  6. SODIUM BICARBONATE IN PLASTIC CONTAINER [Suspect]
     Indication: PRODUCT USED FOR UNKNOWN INDICATION
  7. HYDROCHLOROTHIAZIDE/METOPROLOL [Suspect]
     Indication: PRODUCT USED FOR UNKNOWN INDICATION
  8. ZOLPIDEM [Suspect]
     Indication: PRODUCT USED FOR UNKNOWN INDICATION

REACTIONS (1)
  - TOXICITY TO VARIOUS AGENTS [None]
